FAERS Safety Report 5319577-7 (Version None)
Quarter: 2007Q2

REPORT INFORMATION
  Report Type: 
  Country: None (occurrence: None)
  Receive Date: 20070503
  Receipt Date: 20040720
  Transmission Date: 20071010
  Serious: Yes (Death, Life-Threatening, Hospitalization)
  Sender: FDA-Public Use
  Company Number: 2004AP000622

PATIENT
  Age: 72 Year
  Sex: Female

DRUGS (3)
  1. CARBAMAZEPINE [Suspect]
     Indication: EPILEPSY
     Dosage: SEE IMAGE
     Route: 048
  2. PHENYTOIN [Suspect]
     Indication: EPILEPSY
     Dosage: SEE IMAGE; IV
     Route: 042
  3. LEVOTHYROXINE SODIUM [Suspect]
     Indication: HYPOTHYROIDISM
     Dosage: SEE IMAGE;

REACTIONS (8)
  - CEREBRAL ISCHAEMIA [None]
  - CONDITION AGGRAVATED [None]
  - DEPRESSED LEVEL OF CONSCIOUSNESS [None]
  - DRUG INTERACTION [None]
  - EYELID OEDEMA [None]
  - HYPOTHYROIDISM [None]
  - SEPSIS [None]
  - URINARY TRACT INFECTION [None]
